FAERS Safety Report 21848105 (Version 1)
Quarter: 2023Q1

REPORT INFORMATION
  Report Type: Report from Study
  Country: US (occurrence: US)
  Receive Date: 20230111
  Receipt Date: 20230111
  Transmission Date: 20230418
  Serious: No
  Sender: FDA-Public Use
  Company Number: US-002147023-NVSC2023US005494

PATIENT
  Sex: Female

DRUGS (1)
  1. TABRECTA [Suspect]
     Active Substance: CAPMATINIB
     Indication: Lung neoplasm malignant
     Dosage: 400 MG, BID
     Route: 048
     Dates: start: 202212

REACTIONS (7)
  - Chest pain [Unknown]
  - Dyspnoea [Unknown]
  - Vomiting [Unknown]
  - Chest discomfort [Unknown]
  - Swelling [Unknown]
  - Nausea [Unknown]
  - Cough [Unknown]
